FAERS Safety Report 7627349-3 (Version None)
Quarter: 2011Q3

REPORT INFORMATION
  Report Type: 
  Country: None (occurrence: None)
  Receive Date: 20110721
  Receipt Date: 20110708
  Transmission Date: 20111222
  Serious: Yes (Hospitalization, Other)
  Sender: FDA-Public Use
  Company Number: US-ELI_LILLY_AND_COMPANY-US201107003627

PATIENT
  Age: 84 Year
  Sex: Female

DRUGS (10)
  1. PROTONIX [Concomitant]
     Dosage: 40 MG, QD
  2. LASIX [Concomitant]
     Dosage: 20 MG, QD
  3. ALIGN [Concomitant]
     Dosage: UNK, QD
  4. MAGNESIUM [Concomitant]
     Dosage: 500 MG, UNK
  5. ASPIRIN [Concomitant]
     Dosage: 325 MG, UNK
  6. FORTEO [Suspect]
     Indication: OSTEOPOROSIS
     Dosage: 20 UG, QD
     Route: 065
     Dates: start: 20060101, end: 20080801
  7. METOPROLOL TARTRATE [Concomitant]
     Dosage: 25 MG, QD
  8. VITAMIN D [Concomitant]
  9. ATACAND [Concomitant]
     Indication: BLOOD PRESSURE
     Dosage: 16 MG, UNK
  10. CITRACAL + D [Concomitant]
     Dosage: UNK, QID

REACTIONS (4)
  - SPINAL FRACTURE [None]
  - BONE PAIN [None]
  - AORTIC VALVE STENOSIS [None]
  - CARDIOVASCULAR DISORDER [None]
